FAERS Safety Report 10182466 (Version 1)
Quarter: 2014Q2

REPORT INFORMATION
  Report Type: Report from Study
  Country: US (occurrence: None)
  Receive Date: 20140516
  Receipt Date: 20140516
  Transmission Date: 20141212
  Serious: Yes (Hospitalization)
  Sender: FDA-Public Use
  Company Number: HA14-162-AE

PATIENT
  Age: 52 Year
  Sex: Male
  Weight: 138 kg

DRUGS (9)
  1. NAPROXEN TABLETS, USP (UNKNOWN STRENGTH) [Suspect]
     Indication: OSTEOARTHRITIS
     Route: 048
     Dates: start: 20140130
  2. NAPROXEN TABLETS, USP (UNKNOWN STRENGTH) [Suspect]
     Indication: RHEUMATOID ARTHRITIS
     Route: 048
     Dates: start: 20140130
  3. CELECOXIB; IBUPROFEN; PLACEBO [Suspect]
     Indication: OSTEOARTHRITIS
     Route: 048
     Dates: start: 20140130
  4. CELECOXIB; IBUPROFEN; PLACEBO [Suspect]
     Indication: RHEUMATOID ARTHRITIS
     Route: 048
     Dates: start: 20140130
  5. ESOMEPRAZOLE [Concomitant]
  6. AMLODIPINE [Concomitant]
  7. LOSARTAN/HYDROCHLORITHIAZIDE [Concomitant]
  8. GEMFIBROZIL [Concomitant]
  9. GABAPENTIN [Concomitant]

REACTIONS (1)
  - Cellulitis [None]
